FAERS Safety Report 10745484 (Version 1)
Quarter: 2015Q1

REPORT INFORMATION
  Report Type: Spontaneous
  Country: US (occurrence: US)
  Receive Date: 20150128
  Receipt Date: 20150128
  Transmission Date: 20150721
  Serious: No
  Sender: FDA-Public Use
  Company Number: US-TEVA-536373USA

PATIENT
  Sex: Male

DRUGS (1)
  1. PROAIR HFA [Suspect]
     Active Substance: ALBUTEROL SULFATE
     Indication: COUGH
     Route: 055
     Dates: start: 20150119, end: 20150120

REACTIONS (7)
  - Anxiety [Recovered/Resolved]
  - Panic attack [Recovered/Resolved]
  - Nervousness [Recovered/Resolved]
  - Insomnia [Recovered/Resolved]
  - Tremor [Recovered/Resolved]
  - Cold sweat [Recovered/Resolved]
  - Nausea [Recovered/Resolved]

NARRATIVE: CASE EVENT DATE: 20150119
